FAERS Safety Report 9261297 (Version 1)
Quarter: 2013Q2

REPORT INFORMATION
  Report Type: Spontaneous
  Country: JP (occurrence: JP)
  Receive Date: 20130429
  Receipt Date: 20130429
  Transmission Date: 20140414
  Serious: Yes (Other)
  Sender: FDA-Public Use
  Company Number: JP-GLAXOSMITHKLINE-B0860420A

PATIENT
  Age: 57 Year
  Sex: Female
  Weight: 59 kg

DRUGS (3)
  1. NOGITECAN HYDROCHLORIDE [Suspect]
     Indication: OVARIAN CANCER RECURRENT
     Dosage: 1.25MGM2 PER DAY
     Route: 042
     Dates: start: 20120730, end: 20120803
  2. LASTET [Suspect]
     Indication: OVARIAN CANCER RECURRENT
     Dosage: 50MG PER DAY
     Route: 065
     Dates: start: 20121012
  3. PRIMPERAN [Concomitant]
     Dosage: 5MG PER DAY
     Route: 048
     Dates: start: 20120731, end: 20120803

REACTIONS (7)
  - Decreased appetite [Recovered/Resolved]
  - Fatigue [Recovered/Resolved]
  - White blood cell count decreased [Recovered/Resolved]
  - Neutrophil count decreased [Recovered/Resolved]
  - Constipation [Recovered/Resolved]
  - Stomatitis [Recovered/Resolved]
  - Acute myocardial infarction [Unknown]
